FAERS Safety Report 9657724 (Version 4)
Quarter: 2013Q4

REPORT INFORMATION
  Report Type: Report from Study
  Country: DE (occurrence: DE)
  Receive Date: 20131030
  Receipt Date: 20131226
  Transmission Date: 20140711
  Serious: Yes (Hospitalization, Other)
  Sender: FDA-Public Use
  Company Number: PHHY2013DE119162

PATIENT
  Sex: Female
  Weight: 90 kg

DRUGS (4)
  1. AFINITOR [Suspect]
     Indication: BREAST CANCER METASTATIC
     Dosage: 10 MG, DAILY
     Route: 048
     Dates: start: 20130114, end: 20130310
  2. AFINITOR [Suspect]
     Dosage: 10 MG, DAILY
     Route: 048
     Dates: start: 20130417
  3. EXEMESTANE [Suspect]
     Indication: BREAST CANCER METASTATIC
     Dosage: 25 MG, DAILY
     Route: 048
     Dates: start: 20130114, end: 20130310
  4. EXEMESTANE [Suspect]
     Dosage: 25 MG, DAILY
     Route: 048
     Dates: start: 20130417

REACTIONS (4)
  - Impaired healing [Recovering/Resolving]
  - Fall [Unknown]
  - Lower limb fracture [Recovered/Resolved]
  - Depression [Recovered/Resolved]
